FAERS Safety Report 16150408 (Version 1)
Quarter: 2019Q2

REPORT INFORMATION
  Report Type: Spontaneous
  Country: US (occurrence: US)
  Receive Date: 20190403
  Receipt Date: 20190403
  Transmission Date: 20190711
  Serious: No
  Sender: FDA-Public Use
  Company Number: US-TEVA-2019-US-1024653

PATIENT
  Sex: Female

DRUGS (2)
  1. BACLOFEN TEVA [Suspect]
     Active Substance: BACLOFEN
     Indication: DYSTONIA
     Route: 065
  2. BACLOFEN TEVA [Suspect]
     Active Substance: BACLOFEN
     Indication: MUSCLE SPASTICITY

REACTIONS (2)
  - Product substitution issue [Unknown]
  - Joint stiffness [Unknown]

NARRATIVE: CASE EVENT DATE: 20190122
